FAERS Safety Report 24570559 (Version 1)
Quarter: 2024Q4

REPORT INFORMATION
  Report Type: Spontaneous
  Country: CN (occurrence: CN)
  Receive Date: 20241031
  Receipt Date: 20241031
  Transmission Date: 20250114
  Serious: Yes (Hospitalization, Other)
  Sender: MERCK
  Company Number: CN-BAYER-2024A153645

PATIENT
  Age: 83 Year
  Sex: Female

DRUGS (1)
  1. VERICIGUAT [Suspect]
     Active Substance: VERICIGUAT
     Indication: Cardiac failure
     Dosage: 2.5 MG, QD
     Route: 048
     Dates: start: 20240826, end: 20241018

REACTIONS (2)
  - Chest discomfort [Recovered/Resolved]
  - Asthenia [Recovering/Resolving]

NARRATIVE: CASE EVENT DATE: 20241014
